FAERS Safety Report 9116712 (Version 1)
Quarter: 2013Q1

REPORT INFORMATION
  Report Type: Spontaneous
  Country: US (occurrence: US)
  Receive Date: 20130225
  Receipt Date: 20130225
  Transmission Date: 20140127
  Serious: Yes (Hospitalization, Other)
  Sender: FDA-Public Use
  Company Number: US-PFIZER INC-2013064757

PATIENT
  Age: 76 Year
  Sex: Male

DRUGS (2)
  1. INLYTA [Suspect]
     Dosage: 5MG EVERY 12 HOURS
     Dates: start: 20121113
  2. OXYCODONE [Concomitant]
     Indication: PAIN
     Dosage: UNK

REACTIONS (2)
  - Urinary retention [Unknown]
  - Constipation [Unknown]
